FAERS Safety Report 15728184 (Version 1)
Quarter: 2018Q4

REPORT INFORMATION
  Report Type: Report from Study
  Country: DE (occurrence: DE)
  Receive Date: 20181217
  Receipt Date: 20181217
  Transmission Date: 20190205
  Serious: Yes (Death, Other)
  Sender: FDA-Public Use
  Company Number: DE-TORRENT-00012686

PATIENT
  Age: 87 Year
  Sex: Male
  Weight: 100 kg

DRUGS (6)
  1. BISOPROLOL [Concomitant]
     Active Substance: BISOPROLOL
     Indication: HYPERTENSION
     Dosage: DAILY DOSE: 5 MG MILLGRAM(S) EVERY DAYS
     Route: 048
  2. ACTRAPHANE [Concomitant]
     Active Substance: INSULIN HUMAN
     Indication: TYPE 2 DIABETES MELLITUS
     Dosage: DAILY DOSE: 60 IU INTERNATIONAL UNIT(S) EVERY DAYS
     Route: 058
  3. SIMVASTATIN. [Concomitant]
     Active Substance: SIMVASTATIN
     Indication: PROPHYLAXIS
     Dosage: DAILY DOSE: 40 MG MILLGRAM(S) EVERY DAYS
     Route: 048
  4. APIXABAN [Suspect]
     Active Substance: APIXABAN
     Indication: ATRIAL FIBRILLATION
     Dosage: DAILY DOSE: 10 MG MILLGRAM(S) EVERY DAYS
     Route: 048
  5. RAMIPRIL. [Concomitant]
     Active Substance: RAMIPRIL
     Indication: HYPERTENSION
     Dosage: DAILY DOSE: 2.5 MG MILLGRAM(S) EVERY DAYS
     Route: 048
  6. CLOPIDOGREL [Suspect]
     Active Substance: CLOPIDOGREL BISULFATE
     Indication: CORONARY ARTERIAL STENT INSERTION
     Dosage: UNKNOWN
     Route: 048
     Dates: start: 20170814

REACTIONS (2)
  - Intraventricular haemorrhage [Fatal]
  - Hydrocephalus [Fatal]

NARRATIVE: CASE EVENT DATE: 20181118
